FAERS Safety Report 11613115 (Version 2)
Quarter: 2015Q4

REPORT INFORMATION
  Report Type: Spontaneous
  Country: US (occurrence: US)
  Receive Date: 20151008
  Receipt Date: 20151113
  Transmission Date: 20160304
  Serious: No
  Sender: FDA-Public Use
  Company Number: US-JNJFOC-20150918017

PATIENT
  Age: 28 Year
  Sex: Male
  Weight: 60.24 kg

DRUGS (2)
  1. REMICADE [Suspect]
     Active Substance: INFLIXIMAB
     Indication: CROHN^S DISEASE
     Route: 042
     Dates: start: 20150918, end: 20150918
  2. REMICADE [Suspect]
     Active Substance: INFLIXIMAB
     Indication: CROHN^S DISEASE
     Route: 042
     Dates: start: 20150505, end: 20150526

REACTIONS (1)
  - Drug dispensing error [Recovered/Resolved]

NARRATIVE: CASE EVENT DATE: 20150918
